FAERS Safety Report 5823252-X (Version None)
Quarter: 2008Q3

REPORT INFORMATION
  Report Type: 
  Country: None (occurrence: None)
  Receive Date: 20080724
  Receipt Date: 20080724
  Transmission Date: 20090109
  Serious: Yes (Life-Threatening)
  Sender: FDA-Public Use
  Company Number: None

PATIENT
  Sex: Female
  Weight: 53.9 kg

DRUGS (1)
  1. OXALIPLATIN [Suspect]
     Indication: RECTAL CANCER
     Dosage: 140 MG  ONE DOSE 6/20/08  IV DRIP
     Route: 042
     Dates: start: 20050213, end: 20050706

REACTIONS (3)
  - AUTONOMIC NERVOUS SYSTEM IMBALANCE [None]
  - NEUROPATHY PERIPHERAL [None]
  - SENSORIMOTOR DISORDER [None]
